FAERS Safety Report 8065654-X (Version None)
Quarter: 2011Q4

REPORT INFORMATION
  Report Type: 
  Country: None (occurrence: None)
  Receive Date: 20111221
  Receipt Date: 20110805
  Transmission Date: 20120403
  Serious: Yes (Hospitalization)
  Sender: FDA-Public Use
  Company Number: PHHY2011US01195

PATIENT
  Age: 3 Year
  Sex: Male
  Weight: 15.2 kg

DRUGS (1)
  1. EXJADE [Suspect]
     Indication: IRON OVERLOAD
     Dosage: 250 MG, DAILY, ORAL
     Route: 048
     Dates: start: 20101228

REACTIONS (5)
  - HAEMATOCHEZIA [None]
  - DIARRHOEA [None]
  - MUCOUS STOOLS [None]
  - DRUG INEFFECTIVE [None]
  - DECREASED APPETITE [None]
